FAERS Safety Report 4758071-9 (Version None)
Quarter: 2005Q3

REPORT INFORMATION
  Report Type: 
  Country: None (occurrence: None)
  Receive Date: 20050829
  Receipt Date: 20050816
  Transmission Date: 20060218
  Serious: Yes (Hospitalization)
  Sender: FDA-Public Use
  Company Number: 2005117126

PATIENT
  Age: 12 Year
  Sex: Female
  Weight: 39 kg

DRUGS (15)
  1. RIFABUTIN (RIFABUTIN) [Suspect]
     Indication: MYCOBACTERIAL INFECTION
     Dosage: SEE IMAGE
     Route: 048
     Dates: start: 20050319, end: 20050323
  2. RIFABUTIN (RIFABUTIN) [Suspect]
     Indication: MYCOBACTERIAL INFECTION
     Dosage: SEE IMAGE
     Route: 048
     Dates: start: 20050407, end: 20050407
  3. RIFABUTIN (RIFABUTIN) [Suspect]
     Indication: MYCOBACTERIAL INFECTION
     Dosage: SEE IMAGE
     Route: 048
     Dates: start: 20050131
  4. COLOMYCIN (COLISTIN) [Concomitant]
  5. LACTULOSE [Concomitant]
  6. SENNA (SENNA) [Concomitant]
  7. VITAMIN E [Concomitant]
  8. VITAMIN A AND D (ERGOCALCIFEROL, RETINOL) [Concomitant]
  9. CREON [Concomitant]
  10. CEFTAZIDIME SODIUM [Concomitant]
  11. TOBRAMYCIN [Concomitant]
  12. ALBUTEROL SULFATE HFA [Concomitant]
  13. CLARITHROMYCIN [Concomitant]
  14. CIPROFLOXACIN HCL [Concomitant]
  15. ALL OTHER THERAPEUTIC PRODUCTS (ALL OTHER THERAPEUTIC PRODUCTS) [Concomitant]

REACTIONS (10)
  - ARTHRALGIA [None]
  - HAEMOGLOBIN DECREASED [None]
  - LETHARGY [None]
  - LYMPHOCYTE COUNT DECREASED [None]
  - LYMPHOPENIA [None]
  - MALAISE [None]
  - NEUTROPHIL COUNT DECREASED [None]
  - RED BLOOD CELL COUNT DECREASED [None]
  - WEIGHT DECREASED [None]
  - WHITE BLOOD CELL COUNT DECREASED [None]
